FAERS Safety Report 15218634 (Version 1)
Quarter: 2018Q3

REPORT INFORMATION
  Report Type: Spontaneous
  Country: US (occurrence: US)
  Receive Date: 20180731
  Receipt Date: 20180731
  Transmission Date: 20181010
  Serious: No
  Sender: FDA-Public Use
  Company Number: US-ACCORD-063399

PATIENT
  Age: 58 Year
  Sex: Female

DRUGS (15)
  1. TOPIRAMATE. [Concomitant]
     Active Substance: TOPIRAMATE
  2. AMITRIPTYLINE [Suspect]
     Active Substance: AMITRIPTYLINE
     Indication: PRODUCT USED FOR UNKNOWN INDICATION
  3. DONEPEZIL/DONEPEZIL HYDROCHLORIDE [Concomitant]
  4. NUEDEXTA [Suspect]
     Active Substance: DEXTROMETHORPHAN HYDROBROMIDE\QUINIDINE SULFATE
     Indication: AFFECT LABILITY
     Dosage: STRENGTH: 20/10 MG?1 DF TWICE DAILY
     Route: 048
  5. MUPIROCIN/MUPIROCIN CALCIUM [Concomitant]
     Dosage: STRENGTH: 2%
  6. SERTRALINE [Concomitant]
     Active Substance: SERTRALINE HYDROCHLORIDE
  7. PROPRANOLOL [Concomitant]
     Active Substance: PROPRANOLOL HYDROCHLORIDE
  8. QVAR [Concomitant]
     Active Substance: BECLOMETHASONE DIPROPIONATE
  9. ASCORBIC ACID. [Concomitant]
     Active Substance: ASCORBIC ACID
  10. COLECALCIFEROL [Concomitant]
     Active Substance: CHOLECALCIFEROL
  11. ADAPALENE. [Concomitant]
     Active Substance: ADAPALENE
  12. NAPROXEN. [Concomitant]
     Active Substance: NAPROXEN
  13. PROAIR HFA [Concomitant]
     Active Substance: ALBUTEROL SULFATE
  14. SIMVASTATIN. [Concomitant]
     Active Substance: SIMVASTATIN
  15. CETIRIZINE [Concomitant]
     Active Substance: CETIRIZINE HYDROCHLORIDE

REACTIONS (6)
  - Headache [Unknown]
  - Condition aggravated [Unknown]
  - Weight increased [Unknown]
  - Vertigo [Recovered/Resolved]
  - Affect lability [Unknown]
  - Dizziness [Recovered/Resolved]

NARRATIVE: CASE EVENT DATE: 201707
